FAERS Safety Report 7708136-4 (Version None)
Quarter: 2011Q3

REPORT INFORMATION
  Report Type: 
  Country: None (occurrence: None)
  Receive Date: 20110825
  Receipt Date: 20110817
  Transmission Date: 20111222
  Serious: No
  Sender: FDA-Public Use
  Company Number: US-BIOGENIDEC-2010BI037792

PATIENT
  Sex: Female

DRUGS (2)
  1. ANTIDEPRESSANTS (NOS) [Concomitant]
     Indication: DEPRESSION
  2. TYSABRI [Suspect]
     Indication: MULTIPLE SCLEROSIS
     Route: 042
     Dates: start: 20100721

REACTIONS (10)
  - ABDOMINAL DISTENSION [None]
  - APHASIA [None]
  - TREMOR [None]
  - RASH [None]
  - BLADDER DISCOMFORT [None]
  - COGNITIVE DISORDER [None]
  - MEMORY IMPAIRMENT [None]
  - BACK PAIN [None]
  - ABDOMINAL PAIN UPPER [None]
  - DEPRESSION [None]
